FAERS Safety Report 6637730-7 (Version None)
Quarter: 2010Q1

REPORT INFORMATION
  Report Type: 
  Country: None (occurrence: None)
  Receive Date: 20100317
  Receipt Date: 20100309
  Transmission Date: 20100710
  Serious: Yes (Hospitalization, Other)
  Sender: FDA-Public Use
  Company Number: FR-BRISTOL-MYERS SQUIBB COMPANY-14954465

PATIENT
  Age: 55 Year
  Sex: Female

DRUGS (13)
  1. IRBESARTAN AND HYDROCHLOROTHIAZIDE [Suspect]
     Indication: HYPERTENSION
     Dosage: 1 DF = ONE TABLET
     Route: 048
     Dates: start: 20091127, end: 20091204
  2. APROVEL TABS 300 MG [Suspect]
     Indication: HYPERTENSION
     Route: 048
     Dates: start: 20091029, end: 20091127
  3. DEHYDROEPIANDROSTERONE [Suspect]
     Dosage: 1 DF = 1 TABS
     Route: 048
     Dates: start: 20091124, end: 20091211
  4. DIFFU-K [Concomitant]
     Indication: HYPOKALAEMIA
     Dosage: 3 DF= 3 CAPSULES
     Route: 048
     Dates: start: 20091128, end: 20091218
  5. LEVOTHYROX [Concomitant]
     Indication: AUTOIMMUNE THYROIDITIS
     Dosage: ALSO TAKEN 25MCG,ORALLY FROM 12NOV09
     Route: 048
     Dates: start: 20091112
  6. LOXEN [Concomitant]
     Dosage: 2 CAPS/D
     Route: 048
  7. PARAFFIN OIL [Concomitant]
  8. FUCIDINE [Concomitant]
  9. NERISONE [Concomitant]
  10. TRIDESONIT [Concomitant]
  11. BELLADONNA [Concomitant]
  12. SODIUM BORATE [Concomitant]
  13. OLIVE OIL [Concomitant]

REACTIONS (5)
  - ASTHENIA [None]
  - CHEST PAIN [None]
  - DIARRHOEA [None]
  - DYSPNOEA [None]
  - EOSINOPHILIA [None]
